FAERS Safety Report 9454903 (Version 2)
Quarter: 2013Q4

REPORT INFORMATION
  Report Type: Spontaneous
  Country: BR (occurrence: BR)
  Receive Date: 20130813
  Receipt Date: 20131210
  Transmission Date: 20140711
  Serious: Yes (Other)
  Sender: FDA-Public Use
  Company Number: BR-BRISTOL-MYERS SQUIBB COMPANY-19187202

PATIENT
  Age: 68 Year
  Sex: Male

DRUGS (1)
  1. METFORMIN HCL TABS [Suspect]
     Indication: BLOOD GLUCOSE ABNORMAL
     Dosage: 850MG TAB. 1DF: 2 TAB?FEB13-31JUL13
     Dates: start: 201302, end: 20130731

REACTIONS (2)
  - Serum ferritin increased [Not Recovered/Not Resolved]
  - Weight decreased [Unknown]
